FAERS Safety Report 4436368-X (Version None)
Quarter: 2004Q2

REPORT INFORMATION
  Report Type: 
  Country: None (occurrence: None)
  Receive Date: 20040628
  Receipt Date: 20031106
  Transmission Date: 20050107
  Serious: Yes (Other)
  Sender: FDA-Public Use
  Company Number: 203231

PATIENT
  Age: 42 Year
  Sex: Male

DRUGS (5)
  1. RITUXAN [Suspect]
     Indication: LYMPHOMA
     Dosage: 870 MG, Q3W, INTRAVENOUS
     Route: 042
     Dates: start: 20031105
  2. CYCLOPHOSPHAMIDE [Suspect]
     Indication: LYMPHOMA
  3. VINCRISTINE [Suspect]
     Indication: LYMPHOMA
  4. DOXORUBICIN HCL [Suspect]
     Indication: LYMPHOMA
  5. PREDNISONE [Suspect]
     Indication: LYMPHOMA

REACTIONS (4)
  - CHILLS [None]
  - FLUSHING [None]
  - PRURITUS [None]
  - PYREXIA [None]
